FAERS Safety Report 25244812 (Version 1)
Quarter: 2025Q2

REPORT INFORMATION
  Report Type: Report from Study
  Country: GB (occurrence: GB)
  Receive Date: 20250428
  Receipt Date: 20250428
  Transmission Date: 20250717
  Serious: Yes (Hospitalization)
  Sender: NOVARTIS
  Company Number: GB-002147023-NVSC2025GB045875

PATIENT
  Age: 14 Year
  Sex: Female
  Weight: 51 kg

DRUGS (1)
  1. MEKINIST [Suspect]
     Active Substance: TRAMETINIB DIMETHYL SULFOXIDE
     Indication: Glioneuronal tumour
     Dosage: 1 MG, QD
     Route: 048
     Dates: start: 20230126, end: 20250130

REACTIONS (4)
  - Peripheral vein thrombosis [Recovering/Resolving]
  - Peripheral swelling [Unknown]
  - Skin toxicity [Unknown]
  - Loss of therapeutic response [Unknown]

NARRATIVE: CASE EVENT DATE: 20250130
